FAERS Safety Report 16519882 (Version 1)
Quarter: 2019Q3

REPORT INFORMATION
  Report Type: Spontaneous
  Country: US (occurrence: US)
  Receive Date: 20190522
  Receipt Date: 20190522
  Transmission Date: 20191004
  Serious: Yes (Life-Threatening, Other)
  Sender: FDA-Public Use
  Company Number: None

PATIENT
  Age: 70 Year
  Sex: Female
  Weight: 61.23 kg

DRUGS (9)
  1. TIZANIDINE HCL 4MG [Suspect]
     Active Substance: TIZANIDINE HYDROCHLORIDE
     Indication: PAIN
     Route: 048
     Dates: start: 20190117, end: 20190501
  2. SPINAL STIMULATION [Concomitant]
  3. BYSTOLIC [Concomitant]
     Active Substance: NEBIVOLOL HYDROCHLORIDE
  4. RALOXIFENE. [Concomitant]
     Active Substance: RALOXIFENE
  5. METHOCARBAMOL. [Concomitant]
     Active Substance: METHOCARBAMOL
  6. GABAPENTIN. [Concomitant]
     Active Substance: GABAPENTIN
  7. LEVOTHYROXINE. [Concomitant]
     Active Substance: LEVOTHYROXINE
  8. VITAMIN D3 [Concomitant]
     Active Substance: CHOLECALCIFEROL
  9. AMALODIPINE [Concomitant]

REACTIONS (3)
  - Product label issue [None]
  - Product substitution issue [None]
  - Hypotension [None]

NARRATIVE: CASE EVENT DATE: 20190117
